FAERS Safety Report 5815017-X (Version None)
Quarter: 2008Q3

REPORT INFORMATION
  Report Type: 
  Country: None (occurrence: None)
  Receive Date: 20080718
  Receipt Date: 20080715
  Transmission Date: 20090109
  Serious: Yes (Life-Threatening, Hospitalization)
  Sender: FDA-Public Use
  Company Number: B0517105A

PATIENT
  Age: 80 Year
  Sex: Female

DRUGS (6)
  1. CARVEDILOL [Suspect]
     Dosage: 25MG TWICE PER DAY
     Route: 048
     Dates: end: 20080301
  2. DIGOXIN [Suspect]
     Indication: ATRIAL FIBRILLATION
     Dosage: .25MG PER DAY
     Route: 048
  3. SUTRIL [Suspect]
     Dosage: 15MG PER DAY
     Route: 048
  4. ALDACTONE [Suspect]
     Dosage: 12.5MG PER DAY
     Route: 048
  5. SINTROM [Concomitant]
  6. ALLOPURINOL [Concomitant]

REACTIONS (6)
  - BRADYCARDIA [None]
  - CARDIOACTIVE DRUG LEVEL INCREASED [None]
  - DRUG INTERACTION [None]
  - DYSPNOEA [None]
  - ORTHOPNOEA [None]
  - VOMITING [None]
